FAERS Safety Report 24883919 (Version 2)
Quarter: 2025Q1

REPORT INFORMATION
  Report Type: Spontaneous
  Country: US (occurrence: US)
  Receive Date: 20250124
  Receipt Date: 20250202
  Transmission Date: 20250409
  Serious: No
  Sender: BAUSCH AND LOMB
  Company Number: US-BAUSCHBL-2025BNL000809

PATIENT
  Age: 81 Year
  Sex: Female
  Weight: 48.988 kg

DRUGS (1)
  1. MIEBO [Suspect]
     Active Substance: PERFLUOROHEXYLOCTANE
     Indication: Dry eye
     Dosage: 1 DROP IN THE LEFT EYE TWICE DAILY IN THE MORNING AND EVENING
     Route: 047
     Dates: start: 202501, end: 20250114

REACTIONS (9)
  - Periorbital inflammation [Unknown]
  - Pruritus [Recovered/Resolved]
  - Blepharitis [Not Recovered/Not Resolved]
  - Ocular hyperaemia [Not Recovered/Not Resolved]
  - Accidental exposure to product [Unknown]
  - Exposure via skin contact [Unknown]
  - Inappropriate schedule of product administration [Unknown]
  - Product complaint [Unknown]
  - Product physical consistency issue [Unknown]

NARRATIVE: CASE EVENT DATE: 20250101
